FAERS Safety Report 13741531 (Version 1)
Quarter: 2017Q3

REPORT INFORMATION
  Report Type: Spontaneous
  Country: US (occurrence: US)
  Receive Date: 20170711
  Receipt Date: 20170711
  Transmission Date: 20171127
  Serious: No
  Sender: FDA-Public Use
  Company Number: US-TEVA-785558ACC

PATIENT
  Sex: Female

DRUGS (7)
  1. SUCRALFATE. [Concomitant]
     Active Substance: SUCRALFATE
  2. ATORVASTATIN [Concomitant]
     Active Substance: ATORVASTATIN
  3. BENADRYL [Concomitant]
     Active Substance: DIPHENHYDRAMINE HYDROCHLORIDE
  4. ONDANSETRON [Concomitant]
     Active Substance: ONDANSETRON
  5. FAMOTIDINE. [Concomitant]
     Active Substance: FAMOTIDINE
  6. COPAXONE [Suspect]
     Active Substance: GLATIRAMER ACETATE
     Dosage: 20 MILLIGRAM/MILLILITERS DAILY;
     Dates: start: 20100716
  7. BUSPIRONE [Concomitant]
     Active Substance: BUSPIRONE HYDROCHLORIDE

REACTIONS (3)
  - Flushing [Not Recovered/Not Resolved]
  - Injection site reaction [Not Recovered/Not Resolved]
  - Palpitations [Not Recovered/Not Resolved]
